FAERS Safety Report 17434118 (Version 2)
Quarter: 2020Q1

REPORT INFORMATION
  Report Type: Report from Study
  Country: GB (occurrence: GB)
  Receive Date: 20200219
  Receipt Date: 20200324
  Transmission Date: 20200409
  Serious: Yes (Death, Hospitalization)
  Sender: FDA-Public Use
  Company Number: GB-ASTELLAS-2019US045401

PATIENT
  Age: 69 Year
  Sex: Male

DRUGS (1)
  1. ASG-22CE [Suspect]
     Active Substance: ENFORTUMAB VEDOTIN
     Indication: BREAST CANCER
     Dosage: 120 MG, CYCLIC ON 1, 8, 15 OF EACH 28 D
     Route: 042
     Dates: start: 20191101, end: 20191101

REACTIONS (6)
  - Oedema peripheral [Not Recovered/Not Resolved]
  - Neutrophil count decreased [Not Recovered/Not Resolved]
  - Bladder cancer [Fatal]
  - Hepatic cirrhosis [Fatal]
  - Cellulitis [Not Recovered/Not Resolved]
  - Diabetes mellitus [Fatal]

NARRATIVE: CASE EVENT DATE: 20191108
